FAERS Safety Report 8386567-X (Version None)
Quarter: 2012Q2

REPORT INFORMATION
  Report Type: 
  Country: None (occurrence: None)
  Receive Date: 20120525
  Receipt Date: 20110823
  Transmission Date: 20120825
  Serious: No
  Sender: FDA-Public Use
  Company Number: US-GLAXOSMITHKLINE-A0942005A

PATIENT
  Age: 57 Year
  Sex: Female

DRUGS (12)
  1. QUINIDINE HCL [Concomitant]
  2. PLAVIX [Concomitant]
  3. LISINOPRIL [Concomitant]
  4. AMLODIPINE BESYLATE [Concomitant]
  5. METOPROLOL TARTRATE [Concomitant]
  6. UNSPECIFIED DRUG [Concomitant]
  7. OMEPRAZOLE [Concomitant]
  8. LEVOTHYROXINE SODIUM [Concomitant]
  9. VERAMYST [Suspect]
     Indication: RHINITIS ALLERGIC
     Dosage: 1PUFF PER DAY
     Route: 045
     Dates: start: 20110822
  10. FUROSEMIDE [Concomitant]
  11. SIMVASTATIN [Concomitant]
  12. ASPIRIN [Concomitant]

REACTIONS (1)
  - DRUG INEFFECTIVE [None]
